FAERS Safety Report 23259456 (Version 1)
Quarter: 2023Q4

REPORT INFORMATION
  Report Type: Spontaneous
  Country: US (occurrence: None)
  Receive Date: 20231204
  Receipt Date: 20231204
  Transmission Date: 20240109
  Serious: Yes (Hospitalization)
  Sender: FDA-Public Use
  Company Number: None

PATIENT
  Age: 75 Year
  Sex: Male

DRUGS (1)
  1. HEPARIN [Suspect]
     Active Substance: HEPARIN SODIUM
     Dosage: OTHER STRENGTH : 2500UNT/ML;?
     Dates: start: 20231005, end: 20231018

REACTIONS (5)
  - Cerebral artery occlusion [None]
  - Hypercalcaemia [None]
  - Heparin-induced thrombocytopenia [None]
  - Metastases to liver [None]
  - Metastases to bone [None]

NARRATIVE: CASE EVENT DATE: 20231019
